FAERS Safety Report 5649293-3 (Version None)
Quarter: 2008Q1

REPORT INFORMATION
  Report Type: 
  Country: None (occurrence: None)
  Receive Date: 20080131
  Receipt Date: 20071025
  Transmission Date: 20080703
  Serious: Yes (Hospitalization)
  Sender: FDA-Public Use
  Company Number: US200710007084

PATIENT
  Age: 66 Year
  Sex: Female
  Weight: 57.6 kg

DRUGS (15)
  1. BYETTA [Suspect]
     Dosage: 5 UG
     Dates: start: 20070824, end: 20070902
  2. OMACOR [Concomitant]
  3. EFFEXOR [Concomitant]
  4. NIASPAN [Concomitant]
  5. CRESTOR [Concomitant]
  6. ABILIFY [Concomitant]
  7. SYNTHROID (LEVOTHYROID SODIUM) [Concomitant]
  8. FOSAMAX [Concomitant]
  9. AVALIDE [Concomitant]
  10. MIRAPEX [Concomitant]
  11. COREG [Concomitant]
  12. ACIPHEX [Concomitant]
  13. REGLAN [Concomitant]
  14. METFORMIN HCL [Concomitant]
  15. ANTI-DIABETICS [Concomitant]

REACTIONS (6)
  - ABDOMINAL PAIN [None]
  - ABDOMINAL PAIN UPPER [None]
  - ASPARTATE AMINOTRANSFERASE INCREASED [None]
  - LIPASE INCREASED [None]
  - NAUSEA [None]
  - WEIGHT DECREASED [None]
